FAERS Safety Report 15903482 (Version 1)
Quarter: 2019Q1

REPORT INFORMATION
  Report Type: Spontaneous
  Country: US (occurrence: US)
  Receive Date: 20190203
  Receipt Date: 20190203
  Transmission Date: 20190417
  Serious: No
  Sender: FDA-Public Use
  Company Number: US-TEVA-2019-US-1007049

PATIENT
  Sex: Female

DRUGS (4)
  1. TEVA CLONAZEPAM [Suspect]
     Active Substance: CLONAZEPAM
     Indication: PANIC ATTACK
     Route: 065
  2. TEVA CLONAZEPAM [Suspect]
     Active Substance: CLONAZEPAM
     Indication: PAIN
  3. TEVA CLONAZEPAM [Suspect]
     Active Substance: CLONAZEPAM
     Indication: DEPRESSION
  4. TEVA CLONAZEPAM [Suspect]
     Active Substance: CLONAZEPAM
     Indication: NERVE INJURY

REACTIONS (2)
  - Withdrawal syndrome [Unknown]
  - Increased appetite [Unknown]
